FAERS Safety Report 6675732-5 (Version None)
Quarter: 2010Q2

REPORT INFORMATION
  Report Type: 
  Country: None (occurrence: None)
  Receive Date: 20100409
  Receipt Date: 20100401
  Transmission Date: 20101027
  Serious: Yes (Other)
  Sender: FDA-Public Use
  Company Number: US-AMGEN-KDL394862

PATIENT
  Sex: Female

DRUGS (2)
  1. ENBREL [Suspect]
     Indication: RHEUMATOID ARTHRITIS
     Route: 058
     Dates: start: 20100215
  2. METHOTREXATE [Concomitant]
     Route: 048

REACTIONS (4)
  - DYSPNOEA [None]
  - HEADACHE [None]
  - SINUSITIS [None]
  - WHEEZING [None]
